FAERS Safety Report 6903785-5 (Version None)
Quarter: 2010Q3

REPORT INFORMATION
  Report Type: 
  Country: None (occurrence: None)
  Receive Date: 20100804
  Receipt Date: 20081209
  Transmission Date: 20110219
  Serious: No
  Sender: FDA-Public Use
  Company Number: US-PFIZER INC-2008154662

PATIENT
  Sex: Female
  Weight: 63.502 kg

DRUGS (2)
  1. LYRICA [Suspect]
     Indication: TEMPORAL ARTERITIS
     Dosage: 50 MG, 2X/DAY
     Dates: start: 20080928, end: 20081001
  2. ALL OTHER THERAPEUTIC PRODUCTS [Concomitant]
     Dosage: UNK

REACTIONS (2)
  - HYPERSENSITIVITY [None]
  - RASH [None]
